FAERS Safety Report 9960825 (Version 1)
Quarter: 2014Q1

REPORT INFORMATION
  Report Type: Report from Study
  Country: US (occurrence: US)
  Receive Date: 20140305
  Receipt Date: 20140305
  Transmission Date: 20141002
  Serious: No
  Sender: FDA-Public Use
  Company Number: US-ABBVIE-13P-163-1108593-00

PATIENT
  Age: 26 Year
  Sex: Female

DRUGS (7)
  1. HUMIRA [Suspect]
     Indication: PRODUCT USED FOR UNKNOWN INDICATION
     Dates: start: 20130206
  2. B12 [Concomitant]
     Indication: VITAMIN B12 DEFICIENCY
  3. PROTONIX [Concomitant]
     Indication: CROHN^S DISEASE
     Route: 048
  4. BENTYL [Concomitant]
     Indication: CROHN^S DISEASE
     Route: 048
  5. MARINOL [Concomitant]
     Indication: PAIN
     Dosage: 2.5 MG THREE TIMES A DAY AS NEEDED
     Route: 048
  6. MARINOL [Concomitant]
     Indication: INCREASED APPETITE
  7. VITAMIN D [Concomitant]
     Indication: VITAMIN D DEFICIENCY

REACTIONS (3)
  - Anxiety [Not Recovered/Not Resolved]
  - Injection site pain [Not Recovered/Not Resolved]
  - Injection site pain [Not Recovered/Not Resolved]
